FAERS Safety Report 21338909 (Version 1)
Quarter: 2022Q3

REPORT INFORMATION
  Report Type: Spontaneous
  Country: US (occurrence: US)
  Receive Date: 20220915
  Receipt Date: 20220915
  Transmission Date: 20221027
  Serious: No
  Sender: FDA-Public Use
  Company Number: US-VIVUS, Inc.-2022V1000282

PATIENT
  Age: 36 Year
  Sex: Female
  Weight: 77.634 kg

DRUGS (3)
  1. QSYMIA [Suspect]
     Active Substance: PHENTERMINE HYDROCHLORIDE\TOPIRAMATE
     Indication: Weight decreased
     Route: 048
     Dates: start: 202204
  2. HUMIRA [Concomitant]
     Active Substance: ADALIMUMAB
     Indication: Crohn^s disease
     Route: 048
     Dates: start: 202112
  3. HUMIRA [Concomitant]
     Active Substance: ADALIMUMAB
     Indication: Arthritis

REACTIONS (7)
  - Dysarthria [Recovered/Resolved]
  - Weight loss poor [Not Recovered/Not Resolved]
  - Taste disorder [Not Recovered/Not Resolved]
  - Paraesthesia [Not Recovered/Not Resolved]
  - Insomnia [Recovered/Resolved]
  - Dry mouth [Not Recovered/Not Resolved]
  - Product prescribing error [Unknown]

NARRATIVE: CASE EVENT DATE: 20220401
